FAERS Safety Report 10024576 (Version 1)
Quarter: 2014Q1

REPORT INFORMATION
  Report Type: Spontaneous
  Country: DE (occurrence: DE)
  Receive Date: 20140320
  Receipt Date: 20140320
  Transmission Date: 20141002
  Serious: Yes (Other)
  Sender: FDA-Public Use
  Company Number: PHHY2014DE033309

PATIENT
  Age: 68 Year
  Sex: Male

DRUGS (2)
  1. LOCOL [Suspect]
     Dosage: 80 MG, DAILY
     Route: 048
     Dates: start: 2012
  2. LOCOL [Suspect]
     Dosage: 80 MG, TWICE DAILY
     Route: 048

REACTIONS (2)
  - Muscular dystrophy [Not Recovered/Not Resolved]
  - Overdose [Unknown]
